FAERS Safety Report 8333743-8 (Version None)
Quarter: 2012Q2

REPORT INFORMATION
  Report Type: 
  Country: None (occurrence: None)
  Receive Date: 20120503
  Receipt Date: 20120503
  Transmission Date: 20120825
  Serious: Yes (Other)
  Sender: FDA-Public Use
  Company Number: None

PATIENT
  Age: 82 Year
  Sex: Female
  Weight: 68.492 kg

DRUGS (1)
  1. MISOPROSTOL [Suspect]
     Indication: STEROID THERAPY
     Dosage: |DOSAGETEXT: 1 TABLET||STRENGTH: 100 MCG||FREQ: DAILY||ROUTE: ORAL|
     Route: 048
     Dates: start: 20120427, end: 20120502

REACTIONS (3)
  - MIDDLE INSOMNIA [None]
  - INITIAL INSOMNIA [None]
  - NIGHT SWEATS [None]
